FAERS Safety Report 8037526-8 (Version None)
Quarter: 2012Q1

REPORT INFORMATION
  Report Type: 
  Country: None (occurrence: None)
  Receive Date: 20120111
  Receipt Date: 20120103
  Transmission Date: 20120608
  Serious: Yes (Hospitalization, Other)
  Sender: FDA-Public Use
  Company Number: US-BAYER-2011-062630

PATIENT
  Age: 39 Year
  Sex: Female
  Weight: 58 kg

DRUGS (11)
  1. ASPIRIN [Concomitant]
     Indication: ATRIAL SEPTAL DEFECT
  2. FLEXERIL [Concomitant]
  3. YASMIN [Suspect]
     Indication: CONTRACEPTION
     Dosage: UNK
     Dates: start: 20020101, end: 20090101
  4. NEXIUM [Concomitant]
     Route: 048
  5. DROSPIRENONE AND ETHINYL ESTRADIOL [Suspect]
     Indication: CONTRACEPTION
     Dosage: UNK
     Dates: start: 20020101, end: 20090101
  6. HYPOMAX SR [Concomitant]
     Route: 048
  7. HYPOMAX [Concomitant]
  8. LEVBID [Concomitant]
     Route: 048
  9. DIAZEPAM [Concomitant]
     Route: 048
  10. ZOCOR [Concomitant]
  11. MECLIZINE [Concomitant]
     Route: 048

REACTIONS (6)
  - CEREBROVASCULAR ACCIDENT [None]
  - CEREBRAL INFARCTION [None]
  - ANHEDONIA [None]
  - ANXIETY [None]
  - INJURY [None]
  - PAIN [None]
